FAERS Safety Report 14333529 (Version 4)
Quarter: 2018Q1

REPORT INFORMATION
  Report Type: Report from Study
  Country: KR (occurrence: KR)
  Receive Date: 20171228
  Receipt Date: 20180212
  Transmission Date: 20180509
  Serious: Yes (Hospitalization)
  Sender: FDA-Public Use
  Company Number: KR-EISAI MEDICAL RESEARCH-EC-2017-034663

PATIENT
  Age: 74 Year
  Sex: Female
  Weight: 48.95 kg

DRUGS (5)
  1. LENVATINIB [Suspect]
     Active Substance: LENVATINIB
     Dosage: DOSE REDUCED
     Route: 048
     Dates: start: 20171026, end: 20171217
  2. EVEROLIMUS. [Suspect]
     Active Substance: EVEROLIMUS
     Indication: RENAL CELL CARCINOMA
     Route: 048
     Dates: start: 20170928, end: 20171011
  3. LENVATINIB [Suspect]
     Active Substance: LENVATINIB
     Indication: RENAL CELL CARCINOMA
     Dosage: BLINDED 10 OR 14 MG
     Route: 048
     Dates: start: 20170928, end: 20171017
  4. LENVATINIB [Suspect]
     Active Substance: LENVATINIB
     Dosage: BLINDED DOSE
     Route: 048
     Dates: start: 20171228, end: 20180117
  5. EVEROLIMUS. [Suspect]
     Active Substance: EVEROLIMUS
     Dosage: DOSE REDUCED
     Route: 048
     Dates: start: 20171026, end: 20171123

REACTIONS (1)
  - Diarrhoea [Recovered/Resolved]

NARRATIVE: CASE EVENT DATE: 20171209
